FAERS Safety Report 24149872 (Version 10)
Quarter: 2025Q1

REPORT INFORMATION
  Report Type: Other
  Country: US (occurrence: US)
  Receive Date: 20240730
  Receipt Date: 20250324
  Transmission Date: 20250408
  Serious: No
  Sender: TRAVERE THERAPEUTICS
  Company Number: US-TRAVERE-2024TVT00593

PATIENT
  Age: 64 Year
  Sex: Female
  Weight: 75.3 kg

DRUGS (8)
  1. FILSPARI [Suspect]
     Active Substance: SPARSENTAN
     Indication: IgA nephropathy
     Dosage: NDC NUMBER: 68974040030?RX NUMBER: 78599395/68974040030
     Route: 048
     Dates: start: 202405
  2. CELLCEPT [Concomitant]
     Active Substance: MYCOPHENOLATE MOFETIL
  3. CARVEDILOL [Concomitant]
     Active Substance: CARVEDILOL
  4. CLONIDINE [Concomitant]
     Active Substance: CLONIDINE
  5. EZETIMIBE [Concomitant]
     Active Substance: EZETIMIBE
  6. FARXIGA [Concomitant]
     Active Substance: DAPAGLIFLOZIN PROPANEDIOL
  7. VITAMIN D3 [Concomitant]
     Active Substance: CHOLECALCIFEROL
  8. LASIX [Concomitant]
     Active Substance: FUROSEMIDE

REACTIONS (11)
  - Nausea [None]
  - Chills [Unknown]
  - Hot flush [Unknown]
  - Blood pressure systolic increased [Unknown]
  - Dizziness [None]
  - Abdominal discomfort [Unknown]
  - Limb discomfort [Unknown]
  - Dyspnoea [Unknown]
  - Vision blurred [Unknown]
  - Sinus disorder [Unknown]
  - Abdominal pain upper [None]

NARRATIVE: CASE EVENT DATE: 20240501
